FAERS Safety Report 17908420 (Version 2)
Quarter: 2020Q4

REPORT INFORMATION
  Report Type: Spontaneous
  Country: US (occurrence: US)
  Receive Date: 20200617
  Receipt Date: 20201030
  Transmission Date: 20210113
  Serious: No
  Sender: FDA-Public Use
  Company Number: US-BIOGEN-2020BI00886967

PATIENT
  Age: 34 Year
  Sex: Female

DRUGS (3)
  1. TECFIDERA [Suspect]
     Active Substance: DIMETHYL FUMARATE
     Indication: MULTIPLE SCLEROSIS
     Route: 065
     Dates: start: 20140615
  2. TECFIDERA [Suspect]
     Active Substance: DIMETHYL FUMARATE
     Route: 048
     Dates: start: 202002
  3. TYLENOL [Concomitant]
     Active Substance: ACETAMINOPHEN
     Route: 065

REACTIONS (8)
  - Product dose omission issue [Unknown]
  - Flushing [Unknown]
  - Inappropriate schedule of product administration [Unknown]
  - Skin swelling [Unknown]
  - Confusional state [Unknown]
  - Abdominal pain upper [Unknown]
  - Muscular weakness [Unknown]
  - Eating disorder [Unknown]

NARRATIVE: CASE EVENT DATE: 20200514
